FAERS Safety Report 10173173 (Version 1)
Quarter: 2014Q2

REPORT INFORMATION
  Report Type: Spontaneous
  Country: US (occurrence: None)
  Receive Date: 20140416
  Receipt Date: 20140416
  Transmission Date: 20141212
  Serious: No
  Sender: FDA-Public Use
  Company Number: 163-POMAL-14021248

PATIENT
  Age: 65 Year
  Sex: Male
  Weight: 85.7 kg

DRUGS (16)
  1. POMALYST (POMALIDOMIDE) (3 MILLIGRAM, CAPSULES) [Suspect]
     Indication: PLASMA CELL MYELOMA
     Dosage: 3 MG, 21 IN 21 D, PO
     Route: 048
     Dates: start: 201303
  2. FOLIC ACID (FOLIC ACID) [Concomitant]
  3. CENTRUM SILVER (CENTRUM SILVER) [Concomitant]
  4. GLIPIZIDE (GLIPIZIDE) [Concomitant]
  5. EFFEXOR (VENLAFAXINE HYDROCHLORIDE) [Concomitant]
  6. ASPIRINE (ACETYLSALICYLIC ACID) [Concomitant]
  7. PROTONIX [Concomitant]
  8. OXYCODONE (OXYCODONE) [Concomitant]
  9. CELEBREX (CELECOXIB) [Concomitant]
  10. FLOMAX (TAMSULOSIN HYDROCHLORIDE) [Concomitant]
  11. DEXAMETHASONE (DEXAMETHASONE) [Concomitant]
  12. OXYCONTIN (OXYCODONE HYDROCHLORIDE) [Concomitant]
  13. FUROSEMIDE (FUROSEMIDE) [Concomitant]
  14. CALCIUM (CALCIUM) [Concomitant]
  15. LIPITOR (ATORVASTATIN) [Concomitant]
  16. GABAPENTIN (GABAPENTIN) [Concomitant]

REACTIONS (2)
  - Drug dose omission [None]
  - No adverse event [None]
